FAERS Safety Report 5856267-6 (Version None)
Quarter: 2008Q3

REPORT INFORMATION
  Report Type: 
  Country: None (occurrence: None)
  Receive Date: 20080825
  Receipt Date: 20080819
  Transmission Date: 20090109
  Serious: Yes (Hospitalization)
  Sender: FDA-Public Use
  Company Number: B0529764A

PATIENT
  Age: 34 Year
  Sex: Male
  Weight: 64 kg

DRUGS (2)
  1. PAXIL [Suspect]
     Dosage: 20MG PER DAY
     Route: 048
     Dates: start: 20060201, end: 20080711
  2. ZYPREXA [Suspect]
     Dosage: 2.5MG PER DAY
     Route: 048
     Dates: start: 20060201, end: 20080711

REACTIONS (9)
  - BLOOD CREATINE PHOSPHOKINASE INCREASED [None]
  - CONVULSION [None]
  - HEADACHE [None]
  - HEAT CRAMPS [None]
  - LOCKED-IN SYNDROME [None]
  - NEUROLEPTIC MALIGNANT SYNDROME [None]
  - PYREXIA [None]
  - RHABDOMYOLYSIS [None]
  - VOMITING [None]
